FAERS Safety Report 8335302-X (Version None)
Quarter: 2012Q2

REPORT INFORMATION
  Report Type: 
  Country: None (occurrence: None)
  Receive Date: 20120503
  Receipt Date: 20120423
  Transmission Date: 20120825
  Serious: Yes (Other)
  Sender: FDA-Public Use
  Company Number: JP-PFIZER INC-2012106095

PATIENT
  Age: 82 Year
  Sex: Male

DRUGS (7)
  1. CELEBREX [Suspect]
     Indication: INTERCOSTAL NEURALGIA
     Dosage: 200 MG UNKNOWN/D
     Route: 048
     Dates: end: 20120312
  2. LANSOPRAZOLE [Suspect]
     Route: 048
  3. LANIRAPID [Suspect]
     Route: 048
  4. LYRICA [Suspect]
     Route: 048
  5. PARACETAMOL W/TRAMADOL HYDROCHLORIDE [Concomitant]
     Route: 048
  6. LENDORMIN [Concomitant]
     Route: 048
  7. QVAR 40 [Concomitant]

REACTIONS (3)
  - LUNG DISORDER [None]
  - DYSPNOEA [None]
  - LYMPHOCYTE STIMULATION TEST POSITIVE [None]
